FAERS Safety Report 5447875-5 (Version None)
Quarter: 2007Q3

REPORT INFORMATION
  Report Type: 
  Country: None (occurrence: None)
  Receive Date: 20070910
  Receipt Date: 20070829
  Transmission Date: 20080115
  Serious: Yes (Other)
  Sender: FDA-Public Use
  Company Number: US-SHR-US-2007-010066

PATIENT
  Age: 58 Year
  Sex: Female
  Weight: 99.773 kg

DRUGS (4)
  1. BETASERON [Suspect]
     Indication: RELAPSING-REMITTING MULTIPLE SCLEROSIS
     Dosage: 8 MIU, EVERY 2D
     Route: 058
     Dates: start: 19981218
  2. CELEXA [Concomitant]
     Dosage: 10 MG, 1X/DAY
  3. TEGRETOL [Concomitant]
     Dosage: UNK, 2X/DAY
  4. BACLOFEN [Concomitant]
     Dosage: UNK, 2X/DAY

REACTIONS (2)
  - DYSPHAGIA [None]
  - THYROID NEOPLASM [None]
